FAERS Safety Report 5290129-0 (Version None)
Quarter: 2007Q1

REPORT INFORMATION
  Report Type: 
  Country: None (occurrence: None)
  Receive Date: 20070330
  Receipt Date: 20070326
  Transmission Date: 20070707
  Serious: Yes (Hospitalization)
  Sender: FDA-Public Use
  Company Number: 238863

PATIENT
  Age: 60 Year
  Sex: Male

DRUGS (9)
  1. ACTIVACIN (ALTEPLASE) PWDR + SOLVENT, INFUSION SOLN [Suspect]
     Indication: LACUNAR INFARCTION
     Dosage: 30 MG, SINGLE, INTRAVENOUS
     Route: 042
     Dates: start: 20060304, end: 20060304
  2. WARFARIN SODIUM [Concomitant]
  3. ARGATROBAN (ARGATROBAN) [Concomitant]
  4. ASPIRIN ^BAYER^ (ASPIRIN^ [Concomitant]
  5. OZAGREL SODIUM (OZAGREL) [Concomitant]
  6. PLETAL (CILOSTAZOL) [Concomitant]
  7. BLOPRESS (CANDESARTAN CILEXETIL) [Concomitant]
  8. RADICUT (EDARAVONE) [Concomitant]
  9. LANSOPRAZOLE [Concomitant]

REACTIONS (3)
  - ERYTHEMA [None]
  - FAT EMBOLISM [None]
  - RENAL DISORDER [None]
